FAERS Safety Report 13995169 (Version 3)
Quarter: 2017Q4

REPORT INFORMATION
  Report Type: Spontaneous
  Country: US (occurrence: US)
  Receive Date: 20170921
  Receipt Date: 20171030
  Transmission Date: 20180321
  Serious: Yes (Other)
  Sender: FDA-Public Use
  Company Number: US-TEVA-807011ACC

PATIENT
  Sex: Female

DRUGS (2)
  1. PARAGARD T 380A [Suspect]
     Active Substance: COPPER
     Dates: start: 20170911
  2. PARAGARD T 380A [Suspect]
     Active Substance: COPPER

REACTIONS (7)
  - Weight decreased [Unknown]
  - Uterine perforation [Recovered/Resolved]
  - Abdominal pain [Not Recovered/Not Resolved]
  - Renal cyst [Unknown]
  - Abdominal pain upper [Unknown]
  - Device breakage [Recovered/Resolved]
  - Device dislocation [Recovered/Resolved]

NARRATIVE: CASE EVENT DATE: 20170901
